FAERS Safety Report 4993236-2 (Version None)
Quarter: 2006Q1

REPORT INFORMATION
  Report Type: 
  Country: None (occurrence: None)
  Receive Date: 20060314
  Receipt Date: 20050208
  Transmission Date: 20060701
  Serious: Yes (Other)
  Sender: FDA-Public Use
  Company Number: 200510573BCC

PATIENT
  Age: 21 Year
  Sex: Male
  Weight: 72.5755 kg

DRUGS (2)
  1. ALEVE (CAPLET) [Suspect]
     Indication: SHOULDER PAIN
     Dosage: 220 MG, ONCE, ORAL
     Route: 048
     Dates: start: 20040208
  2. INHALER [Concomitant]

REACTIONS (4)
  - HYPERSENSITIVITY [None]
  - PARAESTHESIA [None]
  - PRURITUS GENERALISED [None]
  - SWELLING FACE [None]
